FAERS Safety Report 11972287 (Version 1)
Quarter: 2016Q1

REPORT INFORMATION
  Report Type: Spontaneous
  Country: US (occurrence: US)
  Receive Date: 20160128
  Receipt Date: 20160128
  Transmission Date: 20160526
  Serious: Yes (Other)
  Sender: FDA-Public Use
  Company Number: US-MYLANLABS-2016M1003128

PATIENT

DRUGS (2)
  1. WARFARIN [Suspect]
     Active Substance: WARFARIN
     Indication: PULMONARY EMBOLISM
     Dosage: 35 TO 37.5 MG/WEEK
     Route: 048
  2. CABOZANTINIB [Interacting]
     Active Substance: CABOZANTINIB
     Indication: METASTATIC RENAL CELL CARCINOMA
     Dosage: 140 MG/DAY
     Route: 048

REACTIONS (8)
  - Drug interaction [Recovered/Resolved]
  - Oral pain [Unknown]
  - International normalised ratio increased [Recovered/Resolved]
  - Dermatitis acneiform [Unknown]
  - Liver function test abnormal [Unknown]
  - Nausea [Unknown]
  - Decreased appetite [Unknown]
  - Fatigue [Unknown]
